FAERS Safety Report 6101481-8 (Version None)
Quarter: 2009Q1

REPORT INFORMATION
  Report Type: 
  Country: None (occurrence: None)
  Receive Date: 20090303
  Receipt Date: 20090303
  Transmission Date: 20090719
  Serious: Yes (Hospitalization)
  Sender: FDA-Public Use
  Company Number: None

PATIENT
  Age: 81 Year
  Sex: Male
  Weight: 58.2 kg

DRUGS (15)
  1. WARFARIN [Suspect]
     Indication: ATRIAL FIBRILLATION
     Dosage: 3MG/1.5 MG MWF/TTSS PO, CHRONIC
     Route: 048
  2. PLAVIX [Suspect]
     Indication: CORONARY ARTERY DISEASE
     Dosage: 75MG DAILY PO, CHRONIC
     Route: 048
  3. IMDUR [Concomitant]
  4. PLAVIX [Concomitant]
  5. COREG [Concomitant]
  6. MIRAPEX [Concomitant]
  7. NEURONTIN [Concomitant]
  8. SKELAXIN [Concomitant]
  9. BUMEX [Concomitant]
  10. LANOXIN [Concomitant]
  11. GLIPIZIDE [Concomitant]
  12. NORCO [Concomitant]
  13. VIT B [Concomitant]
  14. AMBIEN [Concomitant]
  15. ASPIRIN [Concomitant]

REACTIONS (1)
  - EPISTAXIS [None]
